FAERS Safety Report 24069595 (Version 1)
Quarter: 2024Q3

REPORT INFORMATION
  Report Type: Report from Study
  Country: RO (occurrence: RO)
  Receive Date: 20240710
  Receipt Date: 20240710
  Transmission Date: 20241017
  Serious: No
  Sender: ROCHE
  Company Number: RO-ROCHE-3461183

PATIENT
  Age: 53 Year
  Sex: Female
  Weight: 57.0 kg

DRUGS (1)
  1. PHESGO [Suspect]
     Active Substance: HYALURONIDASE-ZZXF\PERTUZUMAB\TRASTUZUMAB
     Indication: Breast cancer
     Dosage: PHESGO 600MG/600MG.
     Route: 030

REACTIONS (2)
  - Off label use [Unknown]
  - No adverse event [Unknown]
